FAERS Safety Report 9650207 (Version 2)
Quarter: 2013Q4

REPORT INFORMATION
  Report Type: Spontaneous
  Country: US (occurrence: US)
  Receive Date: 20131028
  Receipt Date: 20131028
  Transmission Date: 20140711
  Serious: No
  Sender: FDA-Public Use
  Company Number: US-PURDUE-USA-2013-0097727

PATIENT
  Age: 75 Year
  Sex: Male

DRUGS (1)
  1. OXYCONTIN (NDA 22-272) [Suspect]
     Indication: PAIN
     Dosage: 40 MG, Q12H
     Route: 048
     Dates: start: 2009

REACTIONS (8)
  - Drug withdrawal syndrome [Recovered/Resolved]
  - Intentional drug misuse [Unknown]
  - Pain [Recovered/Resolved]
  - Feeling abnormal [Unknown]
  - Palpitations [Recovered/Resolved]
  - Hyperhidrosis [Recovered/Resolved]
  - Restlessness [Recovered/Resolved]
  - Drug ineffective [Recovered/Resolved]
